FAERS Safety Report 12623383 (Version 11)
Quarter: 2018Q1

REPORT INFORMATION
  Report Type: Report from Study
  Country: US (occurrence: US)
  Receive Date: 20160804
  Receipt Date: 20180226
  Transmission Date: 20180508
  Serious: Yes (Hospitalization)
  Sender: FDA-Public Use
  Company Number: US-ACTELION-A-NJ2016-130383

PATIENT
  Age: 35 Year
  Sex: Female
  Weight: 74.83 kg

DRUGS (2)
  1. VELETRI [Suspect]
     Active Substance: EPOPROSTENOL
     Indication: PULMONARY HYPERTENSION
     Dosage: 19 NG/KG, PER MIN
     Route: 042
     Dates: start: 20160125
  2. VELETRI [Suspect]
     Active Substance: EPOPROSTENOL
     Dosage: 18 NG/KG, PER MIN
     Route: 042
     Dates: start: 201707

REACTIONS (20)
  - Influenza [Unknown]
  - Medical device change [Unknown]
  - Gastrointestinal disorder [Unknown]
  - Pain in extremity [Unknown]
  - Rash macular [Unknown]
  - Device dislocation [Unknown]
  - Abdominal pain upper [Unknown]
  - Dehydration [Unknown]
  - Dry skin [Unknown]
  - Skin discolouration [Unknown]
  - Abdominal pain [Unknown]
  - Vomiting [Unknown]
  - Back pain [Unknown]
  - Diarrhoea [Unknown]
  - Nausea [Unknown]
  - Headache [Unknown]
  - Pain in jaw [Unknown]
  - Sepsis [Unknown]
  - Bronchitis [Unknown]
  - Flushing [Unknown]
